FAERS Safety Report 5054354-6 (Version None)
Quarter: 2006Q3

REPORT INFORMATION
  Report Type: 
  Country: None (occurrence: None)
  Receive Date: 20060718
  Receipt Date: 20060711
  Transmission Date: 20061208
  Serious: Yes (Other)
  Sender: FDA-Public Use
  Company Number: US-BOEHRINGER INGELHEIM PHARMACEUTICALS, INC.-2006-BP-07896BP

PATIENT

DRUGS (1)
  1. FLOMAX [Suspect]

REACTIONS (2)
  - OESOPHAGEAL CARCINOMA [None]
  - PROSTATE CANCER [None]
